FAERS Safety Report 9895326 (Version 1)
Quarter: 2014Q1

REPORT INFORMATION
  Report Type: Spontaneous
  Country: US (occurrence: US)
  Receive Date: 20140213
  Receipt Date: 20140213
  Transmission Date: 20141002
  Serious: No
  Sender: FDA-Public Use
  Company Number: US-BRISTOL-MYERS SQUIBB COMPANY-18941575

PATIENT
  Age: 55 Year
  Sex: Female
  Weight: 97.5 kg

DRUGS (8)
  1. ABATACEPT SUBQ INJECTION 125MG/ML [Suspect]
     Indication: RHEUMATOID ARTHRITIS
     Route: 058
     Dates: start: 20130501
  2. ASPIRIN [Concomitant]
  3. ATENOLOL [Concomitant]
  4. CYMBALTA [Concomitant]
  5. OMEGA 3 FATTY ACID [Concomitant]
  6. OMEPRAZOLE [Concomitant]
  7. PLAQUENIL [Concomitant]
  8. SIMVASTATIN [Concomitant]

REACTIONS (2)
  - Excoriation [Recovered/Resolved]
  - Infection [Recovered/Resolved]
